FAERS Safety Report 5589106-1 (Version None)
Quarter: 2007Q4

REPORT INFORMATION
  Report Type: 
  Country: None (occurrence: None)
  Receive Date: 20071212
  Receipt Date: 20070702
  Transmission Date: 20080405
  Serious: Yes (Death, Other)
  Sender: FDA-Public Use
  Company Number: USA-2006-0026825

PATIENT
  Age: 22 Year
  Sex: Male

DRUGS (3)
  1. OXYCODONE HYDROCHLORIDEBLETS (SIMILAR TO NDA 20-553)(OXYCODONE HYDROCH [Suspect]
     Indication: DRUG ABUSER
     Dosage: INT
  2. CANNABIS (CANNABIS) [Suspect]
     Indication: DRUG ABUSER
     Dosage: INHALATION
     Route: 055
  3. ETHANOL (ETHANOL) [Suspect]
     Indication: DRUG ABUSER

REACTIONS (2)
  - MULTIPLE DRUG OVERDOSE ACCIDENTAL [None]
  - SUBSTANCE ABUSE [None]
